FAERS Safety Report 8786449 (Version 1)
Quarter: 2012Q4

REPORT INFORMATION
  Report Type: 
  Country: AR (occurrence: AR)
  Receive Date: 20120914
  Receipt Date: 20120914
  Transmission Date: 20130627
  Serious: Yes (Other)
  Sender: FDA-Public Use
  Company Number: AR-ROCHE-1127787

PATIENT
  Sex: Female

DRUGS (3)
  1. LUCENTIS [Suspect]
     Indication: MACULOPATHY
     Route: 050
  2. DIOVAN [Concomitant]
  3. SINTROM [Concomitant]

REACTIONS (1)
  - Arrhythmia [Recovered/Resolved]
